FAERS Safety Report 13178451 (Version 1)
Quarter: 2017Q1

REPORT INFORMATION
  Report Type: Spontaneous
  Country: US (occurrence: US)
  Receive Date: 20170201
  Receipt Date: 20170201
  Transmission Date: 20170428
  Serious: Yes (Other)
  Sender: FDA-Public Use
  Company Number: None

PATIENT
  Age: 48 Year
  Sex: Female
  Weight: 81 kg

DRUGS (2)
  1. LIPITOR [Suspect]
     Active Substance: ATORVASTATIN CALCIUM
     Indication: DRUG LEVEL INCREASED
     Dates: start: 20170125
  2. ASA [Concomitant]
     Active Substance: ASPIRIN

REACTIONS (2)
  - Extrasystoles [None]
  - Palpitations [None]

NARRATIVE: CASE EVENT DATE: 20170126
